FAERS Safety Report 18336495 (Version 3)
Quarter: 2020Q4

REPORT INFORMATION
  Report Type: Spontaneous
  Country: TR (occurrence: TR)
  Receive Date: 20201001
  Receipt Date: 20201015
  Transmission Date: 20210113
  Serious: Yes (Death)
  Sender: FDA-Public Use
  Company Number: TR-ALLERGAN-2036962US

PATIENT
  Sex: Female

DRUGS (2)
  1. BOTULINUM TOXIN TYPE A UNK [Suspect]
     Active Substance: BOTULINUM TOXIN TYPE A
     Dosage: UNK, SINGLE
     Dates: start: 20200707, end: 20200707
  2. BOTULINUM TOXIN TYPE A UNK [Suspect]
     Active Substance: BOTULINUM TOXIN TYPE A
     Indication: PRODUCT USED FOR UNKNOWN INDICATION
     Dosage: UNK, SINGLE
     Dates: start: 20200919, end: 20200919

REACTIONS (7)
  - Product communication issue [Unknown]
  - Off label use [Unknown]
  - Death [Fatal]
  - General physical health deterioration [Unknown]
  - Hypotension [Unknown]
  - Depressed level of consciousness [Unknown]
  - Gait inability [Unknown]

NARRATIVE: CASE EVENT DATE: 20200919
